FAERS Safety Report 21140983 (Version 1)
Quarter: 2022Q3

REPORT INFORMATION
  Report Type: Spontaneous
  Country: US (occurrence: None)
  Receive Date: 20220728
  Receipt Date: 20220728
  Transmission Date: 20221027
  Serious: No
  Sender: FDA-Public Use
  Company Number: US-ROCHE-2890420

PATIENT

DRUGS (2)
  1. TNKASE [Suspect]
     Active Substance: TENECTEPLASE
     Indication: Cerebrovascular accident
     Dosage: 0.46 OR 0.52 MG/KG, 1 TIME DOSE; ONGOING: NO
     Route: 042
  2. TNKASE [Suspect]
     Active Substance: TENECTEPLASE

REACTIONS (2)
  - Off label use [Unknown]
  - No adverse event [Unknown]
